FAERS Safety Report 16290198 (Version 2)
Quarter: 2019Q2

REPORT INFORMATION
  Report Type: Spontaneous
  Country: US (occurrence: US)
  Receive Date: 20190509
  Receipt Date: 20190517
  Transmission Date: 20190711
  Serious: Yes (Hospitalization)
  Sender: FDA-Public Use
  Company Number: US-VERTEX PHARMACEUTICALS-2019-004153

PATIENT
  Age: 45 Year
  Sex: Male

DRUGS (19)
  1. BASAGLAR [Concomitant]
     Active Substance: INSULIN GLARGINE
  2. VENTOLIN HFA [Concomitant]
     Active Substance: ALBUTEROL SULFATE
  3. NOVOLOG [Concomitant]
     Active Substance: INSULIN ASPART
  4. SILDENAFIL. [Concomitant]
     Active Substance: SILDENAFIL
  5. ALBUTEROL HFA [Concomitant]
     Active Substance: ALBUTEROL SULFATE
  6. SYMBICORT [Suspect]
     Active Substance: BUDESONIDE\FORMOTEROL FUMARATE DIHYDRATE
     Indication: PRODUCT USED FOR UNKNOWN INDICATION
     Route: 065
  7. SMZ (CO) [Concomitant]
  8. COMBIVENT [Concomitant]
     Active Substance: ALBUTEROL SULFATE\IPRATROPIUM BROMIDE
  9. INSULIN [Concomitant]
     Active Substance: INSULIN NOS
  10. ORKAMBI [Suspect]
     Active Substance: IVACAFTOR\LUMACAFTOR
     Indication: CYSTIC FIBROSIS
     Dosage: 2 DOSAGE FORM (400/250 MG), BID
     Route: 048
     Dates: start: 20151022
  11. DULOXETINE. [Concomitant]
     Active Substance: DULOXETINE
  12. LIDOCAINE. [Concomitant]
     Active Substance: LIDOCAINE
  13. CLINDAMYCIN. [Concomitant]
     Active Substance: CLINDAMYCIN
  14. AQUADEKS                           /07679501/ [Concomitant]
     Active Substance: MINERALS\VITAMINS
  15. PULMOZYME [Concomitant]
     Active Substance: DORNASE ALFA
  16. LEVOFLOXACIN. [Concomitant]
     Active Substance: LEVOFLOXACIN
  17. CREON [Concomitant]
     Active Substance: PANCRELIPASE AMYLASE\PANCRELIPASE LIPASE\PANCRELIPASE PROTEASE
  18. FLUTICASONE. [Concomitant]
     Active Substance: FLUTICASONE
  19. TOBI [Suspect]
     Active Substance: TOBRAMYCIN
     Indication: PRODUCT USED FOR UNKNOWN INDICATION
     Route: 055

REACTIONS (2)
  - Respiratory tract irritation [Unknown]
  - Withdrawal syndrome [Not Recovered/Not Resolved]

NARRATIVE: CASE EVENT DATE: 20190506
